FAERS Safety Report 9652188 (Version 1)
Quarter: 2013Q4

REPORT INFORMATION
  Report Type: Spontaneous
  Country: US (occurrence: None)
  Receive Date: 20131025
  Receipt Date: 20131025
  Transmission Date: 20140711
  Serious: Yes (Other)
  Sender: FDA-Public Use
  Company Number: LMI-2013-00443

PATIENT
  Age: 46 Year
  Sex: Male
  Weight: 61 kg

DRUGS (12)
  1. DEFINITY [Suspect]
     Indication: ECHOCARDIOGRAM
     Dosage: UNDILUTED 0.3 ML, INTRAVENOUS BOLUS
     Route: 040
     Dates: start: 20131015, end: 20131015
  2. ALBUTEROL (SALBUTAMOL) [Concomitant]
  3. AMIODARONE [Concomitant]
  4. LOVENOX (ENOXAPARIN SODIUM) [Concomitant]
  5. ADVAIR (FLUTICASONE PROPIONATE, SALMETEROL XINAFOATE) [Concomitant]
  6. LASIX (FUROSEMIDE) [Concomitant]
  7. SINGULAIR [Concomitant]
  8. ALDACTONE (SPIRONOLACTONE) [Concomitant]
  9. COREG (CARVEDILOL) [Concomitant]
  10. LISINOPRIL [Concomitant]
  11. KENALOG OINTMENT (TRIAMCINOLONE ACETONIDE) [Concomitant]
  12. HYDROCORTISONE [Concomitant]

REACTIONS (5)
  - Abdominal pain [None]
  - Muscle rigidity [None]
  - Unresponsive to stimuli [None]
  - Convulsion [None]
  - Faecal incontinence [None]
